FAERS Safety Report 21468543 (Version 1)
Quarter: 2022Q4

REPORT INFORMATION
  Report Type: Report from Study
  Country: CZ (occurrence: None)
  Receive Date: 20221017
  Receipt Date: 20221017
  Transmission Date: 20230112
  Serious: Yes (Other)
  Sender: FDA-Public Use
  Company Number: CZ-Unichem Pharmaceuticals (USA) Inc-UCM202210-001030

PATIENT
  Sex: Female

DRUGS (1)
  1. DIVALPROEX SODIUM [Suspect]
     Active Substance: DIVALPROEX SODIUM
     Indication: Foetal exposure during pregnancy

REACTIONS (2)
  - Abortion spontaneous [Unknown]
  - Foetal exposure during pregnancy [Unknown]
